FAERS Safety Report 12046196 (Version 2)
Quarter: 2016Q3

REPORT INFORMATION
  Report Type: Report from Study
  Country: CO (occurrence: CO)
  Receive Date: 20160208
  Receipt Date: 20160701
  Transmission Date: 20161109
  Serious: Yes (Hospitalization)
  Sender: FDA-Public Use
  Company Number: PHHY2016CO016679

PATIENT
  Sex: Female
  Weight: 23 kg

DRUGS (4)
  1. ZINC SULFATE [Concomitant]
     Active Substance: ZINC SULFATE\ZINC SULFATE ANHYDROUS
     Indication: PRODUCT USED FOR UNKNOWN INDICATION
     Dosage: 5 ML, QD
     Route: 048
  2. EXJADE [Suspect]
     Active Substance: DEFERASIROX
     Indication: PRODUCT USED FOR UNKNOWN INDICATION
     Dosage: 375 MG (1 TABLET OF 250 MG AND 1 TABLET OF 125 MG) (15 MG/KG), QD
     Route: 048
     Dates: start: 20140328
  3. HYDROXYUREA. [Concomitant]
     Active Substance: HYDROXYUREA
     Indication: PRODUCT USED FOR UNKNOWN INDICATION
     Dosage: 500 MG, QD
     Route: 048
  4. FOLIC ACID. [Concomitant]
     Active Substance: FOLIC ACID
     Indication: PRODUCT USED FOR UNKNOWN INDICATION
     Dosage: 1 MG, 2 AT MORNING 2 AT MIDDAY AND 1 AT NIGHT

REACTIONS (7)
  - Malaise [Unknown]
  - Vomiting [Unknown]
  - Hallucination [Unknown]
  - Hypoaesthesia [Unknown]
  - Diarrhoea [Unknown]
  - Chest pain [Unknown]
  - Blood iron increased [Unknown]
